FAERS Safety Report 17962762 (Version 1)
Quarter: 2020Q2

REPORT INFORMATION
  Report Type: Report from Study
  Country: None (occurrence: US)
  Receive Date: 20200630
  Receipt Date: 20200630
  Transmission Date: 20200714
  Serious: Yes (Other)
  Sender: FDA-Public Use
  Company Number: US-BIOVITRUM-2020US0415

PATIENT
  Sex: Male

DRUGS (2)
  1. KINERET [Suspect]
     Active Substance: ANAKINRA
     Indication: PARTIAL SEIZURES
     Route: 058
     Dates: start: 20191106
  2. LACOSAMIDE. [Concomitant]
     Active Substance: LACOSAMIDE

REACTIONS (14)
  - Pyrexia [Unknown]
  - Protein total decreased [Unknown]
  - Partial seizures [Unknown]
  - Condition aggravated [Unknown]
  - Blood creatinine increased [Unknown]
  - White blood cell count increased [Unknown]
  - Cognitive disorder [Unknown]
  - Blood triglycerides increased [Unknown]
  - Pharyngitis streptococcal [Unknown]
  - Anger [Unknown]
  - Off label use [Unknown]
  - Somnolence [Unknown]
  - Blood urea increased [Unknown]
  - Asthenia [Unknown]
